FAERS Safety Report 21232539 (Version 1)
Quarter: 2022Q3

REPORT INFORMATION
  Report Type: Spontaneous
  Country: TW (occurrence: TW)
  Receive Date: 20220819
  Receipt Date: 20220819
  Transmission Date: 20221027
  Serious: Yes (Death, Hospitalization, Other)
  Sender: FDA-Public Use
  Company Number: TW-PFIZER INC-PV202200044618

PATIENT
  Sex: Female

DRUGS (1)
  1. XELJANZ [Suspect]
     Active Substance: TOFACITINIB CITRATE
     Indication: Rheumatoid arthritis
     Dosage: 5 MG, BID
     Route: 048
     Dates: start: 20170607

REACTIONS (5)
  - Arthritis infective [Fatal]
  - Arthralgia [Fatal]
  - Joint swelling [Fatal]
  - Asthenia [Fatal]
  - Gait inability [Fatal]

NARRATIVE: CASE EVENT DATE: 20220805
